FAERS Safety Report 5228840-X (Version None)
Quarter: 2007Q1

REPORT INFORMATION
  Report Type: 
  Country: None (occurrence: None)
  Receive Date: 20070131
  Receipt Date: 20070123
  Transmission Date: 20070707
  Serious: Yes (Other)
  Sender: FDA-Public Use
  Company Number: 163-20785-07011290

PATIENT
  Age: 66 Year
  Sex: Male
  Weight: 87.9978 kg

DRUGS (14)
  1. THALOMID [Suspect]
     Indication: MULTIPLE MYELOMA
     Dosage: SEE IMAGE
     Route: 048
     Dates: start: 20060512, end: 20060801
  2. THALOMID [Suspect]
     Indication: MULTIPLE MYELOMA
     Dosage: SEE IMAGE
     Route: 048
     Dates: start: 20060801, end: 20070101
  3. THALOMID [Suspect]
     Indication: MULTIPLE MYELOMA
     Dosage: SEE IMAGE
     Route: 048
     Dates: start: 20070102
  4. OXYCONTIN [Concomitant]
  5. PROTONIX [Concomitant]
  6. PROCARDIA [Concomitant]
  7. PROCRIT [Concomitant]
  8. XANAX [Concomitant]
  9. NIFEREX (POLYSACCHARIDE-IRON COMPLEX) [Concomitant]
  10. LEXAPRO [Concomitant]
  11. ZESTRIL [Concomitant]
  12. DIGOXIN [Concomitant]
  13. COUMADIN [Concomitant]
  14. ZOMETA [Concomitant]

REACTIONS (3)
  - BLOOD IMMUNOGLOBULIN A INCREASED [None]
  - DECUBITUS ULCER [None]
  - STAPHYLOCOCCAL INFECTION [None]
